FAERS Safety Report 23230902 (Version 1)
Quarter: 2023Q4

REPORT INFORMATION
  Report Type: Spontaneous
  Country: US (occurrence: None)
  Receive Date: 20231124
  Receipt Date: 20231124
  Transmission Date: 20240109
  Serious: Yes (Death)
  Sender: FDA-Public Use
  Company Number: None

PATIENT
  Age: 72 Year
  Sex: Male

DRUGS (23)
  1. TIVICAY [Suspect]
     Active Substance: DOLUTEGRAVIR SODIUM
     Indication: HIV infection
     Dosage: FREQUENCY : DAILY;?
     Route: 048
     Dates: start: 20210918, end: 20231115
  2. DESCOVY [Suspect]
     Active Substance: EMTRICITABINE\TENOFOVIR ALAFENAMIDE FUMARATE
     Indication: HIV infection
     Dosage: FREQUENCY : DAILY;?
     Route: 048
     Dates: start: 20210918, end: 20231115
  3. ACYCLOVIR [Concomitant]
     Active Substance: ACYCLOVIR
     Dates: start: 20220131, end: 20231115
  4. AMIODARONE [Concomitant]
     Active Substance: AMIODARONE
     Dates: start: 20220106, end: 20231115
  5. ASPIRIN [Concomitant]
     Active Substance: ASPIRIN
     Dates: start: 20220324, end: 20231115
  6. ATORVASTATIN [Concomitant]
     Active Substance: ATORVASTATIN
     Dates: start: 20210916, end: 20231115
  7. CITALOPRAM [Concomitant]
     Active Substance: CITALOPRAM HYDROBROMIDE
     Dates: start: 20220627, end: 20231115
  8. CLONAZEPAM [Concomitant]
     Active Substance: CLONAZEPAM
     Dates: start: 20220425, end: 20231115
  9. Colchicine 0.6 mg [Concomitant]
     Dates: start: 20221020, end: 20231115
  10. FAMOTIDINE [Concomitant]
     Active Substance: FAMOTIDINE
     Dates: start: 20211021, end: 20231115
  11. FLUDROCORTISONE [Concomitant]
     Active Substance: FLUDROCORTISONE
     Dates: start: 20220503, end: 20231115
  12. HYDROCORTISONE [Concomitant]
     Active Substance: HYDROCORTISONE
     Dates: start: 20221125, end: 20231115
  13. KETOCONAZOLE [Concomitant]
     Active Substance: KETOCONAZOLE
     Dates: start: 20230510, end: 20231115
  14. LEVOTHYROXINE [Concomitant]
     Active Substance: LEVOTHYROXINE
     Dates: start: 20221027, end: 20231115
  15. Magnesium Gluconate 500 mg [Concomitant]
     Dates: start: 20220131, end: 20231115
  16. Melatonin 3 mg [Concomitant]
     Dates: start: 20220203, end: 20231115
  17. Midodrine 5 mg [Concomitant]
     Dates: start: 20211011, end: 20231115
  18. ONDANSETRON [Concomitant]
     Active Substance: ONDANSETRON
     Dates: start: 20230823, end: 20231115
  19. Phos-nak powder packets [Concomitant]
     Dates: start: 20230717, end: 20231115
  20. PIFELTRO [Concomitant]
     Active Substance: DORAVIRINE
     Dates: start: 20210918, end: 20231115
  21. PEG 3350 powder packets [Concomitant]
     Dates: start: 20211110, end: 20231115
  22. Prochloperazine 10 mg [Concomitant]
     Dates: start: 20230621, end: 20231115
  23. Vitamin d3 50 mcg [Concomitant]
     Dates: start: 20230712, end: 20231115

REACTIONS (1)
  - Death [None]

NARRATIVE: CASE EVENT DATE: 20231115
